FAERS Safety Report 9571429 (Version 3)
Quarter: 2013Q4

REPORT INFORMATION
  Report Type: Report from Study
  Country: US (occurrence: US)
  Receive Date: 20131001
  Receipt Date: 20131128
  Transmission Date: 20140711
  Serious: No
  Sender: FDA-Public Use
  Company Number: US-009507513-1310USA000049

PATIENT
  Age: 56 Year
  Sex: Female

DRUGS (8)
  1. VICTRELIS [Suspect]
     Indication: CHRONIC HEPATITIS C
     Dosage: UNK, TID
     Route: 048
     Dates: start: 20130918
  2. RIBASPHERE [Suspect]
     Indication: CHRONIC HEPATITIS C
     Dosage: DIVIDED DOSES 600/600 (1 IN 1 D)
     Route: 048
     Dates: start: 20130913
  3. RIBASPHERE [Suspect]
     Dosage: 800 MG, DAILY
     Route: 048
     Dates: start: 20130918
  4. RIBASPHERE [Suspect]
     Dosage: 400 MG, DAILY
     Route: 048
     Dates: start: 20131017
  5. RIBASPHERE [Suspect]
     Dosage: 600 MG, DAILY, 1 IN 1 D
     Route: 048
     Dates: start: 20131101
  6. PEGASYS [Suspect]
     Indication: CHRONIC HEPATITIS C
     Dosage: 180 MICROGRAM PROCLICK INJECTOR, QW
     Route: 058
     Dates: start: 20130918
  7. LYRICA [Concomitant]
  8. TYLENOL [Concomitant]
     Indication: HEADACHE

REACTIONS (17)
  - Pain in extremity [Unknown]
  - Back pain [Unknown]
  - Feeling hot [Unknown]
  - Musculoskeletal pain [Unknown]
  - Paraesthesia [Unknown]
  - Headache [Unknown]
  - Muscle tightness [Unknown]
  - Injection site extravasation [Unknown]
  - Middle insomnia [Unknown]
  - Glossodynia [Unknown]
  - Irritability [Unknown]
  - Haemoglobin decreased [Unknown]
  - Chest discomfort [Unknown]
  - Lacrimation increased [Unknown]
  - Nausea [Unknown]
  - Intervertebral disc protrusion [Unknown]
  - Platelet count decreased [Unknown]
